FAERS Safety Report 8078356-0 (Version None)
Quarter: 2012Q1

REPORT INFORMATION
  Report Type: 
  Country: None (occurrence: None)
  Receive Date: 20120123
  Receipt Date: 20120109
  Transmission Date: 20120608
  Serious: Yes (Death)
  Sender: FDA-Public Use
  Company Number: JPI-P-014798

PATIENT
  Age: 61 Year
  Sex: Male

DRUGS (14)
  1. PSYCHODYSLEPTICS (HALLUCINOGENS) [Suspect]
     Indication: PRODUCT USED FOR UNKNOWN INDICATION
     Dates: end: 20090106
  2. NARCOTICS [Suspect]
     Indication: PRODUCT USED FOR UNKNOWN INDICATION
     Dates: end: 20090106
  3. BENZODIAZEPINES [Suspect]
     Indication: PRODUCT USED FOR UNKNOWN INDICATION
     Dates: end: 20090106
  4. XYREM [Suspect]
     Indication: SLEEP DISORDER
     Dosage: 9;10  GM (4.5 GM; 5 GM, 2 IN 1 D), ORAL
     Route: 048
     Dates: start: 20080521, end: 20090106
  5. XYREM [Suspect]
     Indication: SLEEP DISORDER
     Dosage: 9;10  GM (4.5 GM; 5 GM, 2 IN 1 D), ORAL
     Route: 048
     Dates: start: 20040223, end: 20080520
  6. ANTIEPILEPTICS [Suspect]
     Indication: PRODUCT USED FOR UNKNOWN INDICATION
     Dates: end: 20090106
  7. UNSPECIFIED ANTIDEPRESSANTS [Suspect]
     Indication: PRODUCT USED FOR UNKNOWN INDICATION
     Dates: end: 20090106
  8. OTHER AND UNSPECIFIED DRUGS, MEDICAMENTS, AND BIOLOGICAL SUBSTANCES [Suspect]
     Indication: PRODUCT USED FOR UNKNOWN INDICATION
     Dates: end: 20090106
  9. OPIOIDS [Suspect]
     Indication: PRODUCT USED FOR UNKNOWN INDICATION
     Dates: end: 20090106
  10. PSYCHOTROPICS [Suspect]
     Indication: PRODUCT USED FOR UNKNOWN INDICATION
     Dates: end: 20090106
  11. ANTIEMETICS [Suspect]
     Indication: PRODUCT USED FOR UNKNOWN INDICATION
     Dates: end: 20090106
  12. ANTIALLERGIC DRUGS [Suspect]
     Indication: PRODUCT USED FOR UNKNOWN INDICATION
     Dates: end: 20090106
  13. SEDATIVE-HYPNOTIC [Suspect]
     Indication: PRODUCT USED FOR UNKNOWN INDICATION
     Dates: end: 20090106
  14. ANTIPARKINSONISM DRUGS [Suspect]
     Indication: PRODUCT USED FOR UNKNOWN INDICATION
     Dates: end: 20090106

REACTIONS (1)
  - ACCIDENTAL POISONING [None]
